FAERS Safety Report 13306174 (Version 1)
Quarter: 2017Q1

REPORT INFORMATION
  Report Type: Report from Study
  Country: AU (occurrence: AU)
  Receive Date: 20170308
  Receipt Date: 20170308
  Transmission Date: 20170428
  Serious: Yes (Hospitalization)
  Sender: FDA-Public Use
  Company Number: AU-PFIZER INC-2017093259

PATIENT
  Age: 87 Year
  Sex: Female

DRUGS (3)
  1. METOCLOPRAMIDE HCL [Suspect]
     Active Substance: METOCLOPRAMIDE HYDROCHLORIDE
     Dosage: 10-40 MG
     Route: 058
  2. MIDAZOLAM HCL [Suspect]
     Active Substance: MIDAZOLAM HYDROCHLORIDE
     Dosage: 0.5-2.0 MG
     Route: 058
  3. MORPHINE HCL [Suspect]
     Active Substance: MORPHINE HYDROCHLORIDE
     Dosage: 5-10 MG
     Route: 058

REACTIONS (2)
  - Incorrect dose administered by device [Unknown]
  - Pain [Unknown]
